FAERS Safety Report 5405015-2 (Version None)
Quarter: 2007Q3

REPORT INFORMATION
  Report Type: 
  Country: None (occurrence: None)
  Receive Date: 20070803
  Receipt Date: 20070724
  Transmission Date: 20080115
  Serious: Yes (Other)
  Sender: FDA-Public Use
  Company Number: BR-JNJFOC-20070706244

PATIENT
  Age: 4 Month
  Sex: Male
  Weight: 10 kg

DRUGS (1)
  1. MICRONOR [Suspect]
     Indication: DRUG EXPOSURE VIA BREAST MILK
     Route: 063

REACTIONS (3)
  - DRUG EXPOSURE VIA BREAST MILK [None]
  - GROWTH ACCELERATED [None]
  - WEIGHT INCREASED [None]
